FAERS Safety Report 16973659 (Version 5)
Quarter: 2020Q1

REPORT INFORMATION
  Report Type: Report from Study
  Country: DE (occurrence: DE)
  Receive Date: 20191030
  Receipt Date: 20200212
  Transmission Date: 20200409
  Serious: Yes (Hospitalization)
  Sender: FDA-Public Use
  Company Number: DE-SUN PHARMACEUTICAL INDUSTRIES LTD-2019RR-225282

PATIENT
  Age: 90 Year
  Sex: Female
  Weight: 85 kg

DRUGS (8)
  1. TILIDIN 100/8 MG [Concomitant]
     Indication: PRE-EXISTING DISEASE
     Dosage: 100 MILLIGRAM, BID
     Route: 065
  2. REPAGLINID [Concomitant]
     Active Substance: REPAGLINIDE
     Indication: PRE-EXISTING DISEASE
     Dosage: UNK, QID
     Route: 065
  3. PANTOPRAZOL [Concomitant]
     Active Substance: PANTOPRAZOLE SODIUM
     Indication: PRE-EXISTING DISEASE
     Dosage: 20 MILLIGRAM, DAILY
     Route: 065
  4. ODOMZO [Suspect]
     Active Substance: SONIDEGIB
     Indication: BASAL CELL CARCINOMA
     Dosage: 200 MILLIGRAM, DAILY
     Route: 048
     Dates: start: 20190815
  5. ALLOPURINOL. [Concomitant]
     Active Substance: ALLOPURINOL
     Indication: PRE-EXISTING DISEASE
     Dosage: 100 MILLIGRAM, BID
     Route: 065
  6. AMLODIPIN [Concomitant]
     Active Substance: AMLODIPINE BESYLATE
     Indication: PRE-EXISTING DISEASE
     Dosage: 5 MILLIGRAM, BID
     Route: 065
  7. GABAPENTIN. [Concomitant]
     Active Substance: GABAPENTIN
     Indication: PRE-EXISTING DISEASE
     Dosage: 300 MILLIGRAM, DAILY
     Route: 065
  8. VENLAFAXIN [Concomitant]
     Active Substance: VENLAFAXINE HYDROCHLORIDE
     Indication: PRE-EXISTING DISEASE
     Dosage: 75 MILLIGRAM, DAILY
     Route: 065

REACTIONS (1)
  - Myocardial infarction [Recovered/Resolved with Sequelae]

NARRATIVE: CASE EVENT DATE: 20191015
